FAERS Safety Report 15702390 (Version 1)
Quarter: 2018Q4

REPORT INFORMATION
  Report Type: Spontaneous
  Country: US (occurrence: US)
  Receive Date: 20181210
  Receipt Date: 20181210
  Transmission Date: 20190205
  Serious: No
  Sender: FDA-Public Use
  Company Number: US-SHIRE-US201847573

PATIENT
  Age: 46 Year
  Sex: Male

DRUGS (1)
  1. VYVANSE [Suspect]
     Active Substance: LISDEXAMFETAMINE DIMESYLATE
     Indication: EATING DISORDER
     Dosage: 40 MG, UNK
     Route: 065

REACTIONS (2)
  - Therapeutic response shortened [Unknown]
  - Insomnia [Unknown]
